FAERS Safety Report 12987905 (Version 3)
Quarter: 2017Q1

REPORT INFORMATION
  Report Type: Report from Study
  Country: LB (occurrence: LB)
  Receive Date: 20161130
  Receipt Date: 20170202
  Transmission Date: 20170428
  Serious: Yes (Death, Hospitalization)
  Sender: FDA-Public Use
  Company Number: PHHY2016LB163956

PATIENT
  Age: 82 Year
  Sex: Male

DRUGS (2)
  1. ENTRESTO [Suspect]
     Active Substance: SACUBITRIL\VALSARTAN
     Indication: PRODUCT USED FOR UNKNOWN INDICATION
     Dosage: 100 MG, BID
     Route: 048
     Dates: start: 20160920, end: 20161026
  2. ENTRESTO [Suspect]
     Active Substance: SACUBITRIL\VALSARTAN
     Dosage: 50 MG, BID
     Route: 048
     Dates: start: 20161026

REACTIONS (3)
  - Cardiac arrest [Fatal]
  - Lung infection [Fatal]
  - Pulmonary oedema [Unknown]

NARRATIVE: CASE EVENT DATE: 20161121
